FAERS Safety Report 5921233-9 (Version None)
Quarter: 2008Q4

REPORT INFORMATION
  Report Type: 
  Country: None (occurrence: None)
  Receive Date: 20081016
  Receipt Date: 20081006
  Transmission Date: 20090506
  Serious: Yes (Other)
  Sender: FDA-Public Use
  Company Number: DE-BAXTER-2008BH006630

PATIENT
  Age: 67 Year
  Sex: Female
  Weight: 86 kg

DRUGS (3)
  1. GAMMAGARD LIQUID [Suspect]
     Indication: WALDENSTROM'S MACROGLOBULINAEMIA
     Route: 042
     Dates: start: 20080618, end: 20080618
  2. GAMMAGARD LIQUID [Suspect]
     Route: 042
     Dates: start: 20080619, end: 20080619
  3. CORTISOL [Concomitant]

REACTIONS (6)
  - ABDOMINAL PAIN UPPER [None]
  - CONDITION AGGRAVATED [None]
  - ERYTHEMA [None]
  - FEELING HOT [None]
  - URTICARIA [None]
  - VASCULITIS [None]
